FAERS Safety Report 17493193 (Version 2)
Quarter: 2020Q1

REPORT INFORMATION
  Report Type: Report from Study
  Country: CA (occurrence: CA)
  Receive Date: 20200304
  Receipt Date: 20200309
  Transmission Date: 20200409
  Serious: Yes (Hospitalization, Other)
  Sender: FDA-Public Use
  Company Number: CA-ORION CORPORATION ORION PHARMA-TREX2020-1140

PATIENT
  Age: 60 Year
  Weight: 73 kg

DRUGS (30)
  1. COSENTYX [Suspect]
     Active Substance: SECUKINUMAB
     Indication: PSORIATIC ARTHROPATHY
     Route: 058
  2. PREGABALIN. [Concomitant]
     Active Substance: PREGABALIN
     Route: 065
  3. TELMISARTAN. [Concomitant]
     Active Substance: TELMISARTAN
     Indication: HYPERTENSION
     Route: 065
  4. HUMIRA [Concomitant]
     Active Substance: ADALIMUMAB
     Route: 065
  5. LEVOTHYROXINE. [Concomitant]
     Active Substance: LEVOTHYROXINE
     Indication: HYPOTHYROIDISM
     Route: 065
  6. ROSUVASTATIN. [Concomitant]
     Active Substance: ROSUVASTATIN
     Indication: BLOOD CHOLESTEROL INCREASED
     Route: 065
  7. ROSUVASTATIN. [Concomitant]
     Active Substance: ROSUVASTATIN
     Route: 065
  8. METHOTREXATE (TRADE NAME UNKNOWN) [Suspect]
     Active Substance: METHOTREXATE
     Route: 048
  9. CICLOSPORIN [Suspect]
     Active Substance: CYCLOSPORINE
     Route: 048
  10. CLOBETASOL [Concomitant]
     Active Substance: CLOBETASOL
     Route: 065
  11. IXEKIZUMAB [Concomitant]
     Active Substance: IXEKIZUMAB
     Route: 065
  12. NAPROXEN. [Concomitant]
     Active Substance: NAPROXEN
     Indication: PSORIATIC ARTHROPATHY
     Route: 065
  13. PREDNISONE. [Concomitant]
     Active Substance: PREDNISONE
     Route: 065
  14. SYNTHROID [Concomitant]
     Active Substance: LEVOTHYROXINE SODIUM
     Route: 065
  15. TRAMADOL. [Concomitant]
     Active Substance: TRAMADOL
     Indication: TENDONITIS
     Route: 065
  16. CICLOSPORIN [Suspect]
     Active Substance: CYCLOSPORINE
     Indication: PRODUCT USED FOR UNKNOWN INDICATION
     Route: 065
  17. COSENTYX [Suspect]
     Active Substance: SECUKINUMAB
     Indication: PSORIASIS
     Route: 058
  18. ACITRETIN. [Concomitant]
     Active Substance: ACITRETIN
     Route: 065
  19. DERMOVATE [Concomitant]
     Active Substance: CLOBETASOL
     Route: 065
  20. COSENTYX [Suspect]
     Active Substance: SECUKINUMAB
     Route: 058
  21. COSENTYX [Suspect]
     Active Substance: SECUKINUMAB
     Route: 058
  22. COSENTYX [Suspect]
     Active Substance: SECUKINUMAB
     Route: 058
  23. PREGABALIN. [Concomitant]
     Active Substance: PREGABALIN
     Indication: TENDONITIS
     Route: 065
  24. PSORALEN [Concomitant]
     Active Substance: PSORALEN
     Route: 065
  25. TELMISARTAN. [Concomitant]
     Active Substance: TELMISARTAN
     Route: 065
  26. METHOTREXATE (TRADE NAME UNKNOWN) [Suspect]
     Active Substance: METHOTREXATE
     Indication: PRODUCT USED FOR UNKNOWN INDICATION
     Route: 065
  27. COSENTYX [Suspect]
     Active Substance: SECUKINUMAB
     Route: 058
  28. ENBREL [Concomitant]
     Active Substance: ETANERCEPT
     Route: 065
  29. COSENTYX [Suspect]
     Active Substance: SECUKINUMAB
     Route: 058
  30. CIMZIA [Concomitant]
     Active Substance: CERTOLIZUMAB PEGOL
     Route: 065

REACTIONS (6)
  - Osteoarthritis [Recovered/Resolved]
  - Osteonecrosis [Recovered/Resolved]
  - Overdose [Unknown]
  - Drug ineffective [Recovered/Resolved]
  - Product use issue [Unknown]
  - Gait inability [Recovered/Resolved]
